FAERS Safety Report 15476926 (Version 2)
Quarter: 2019Q1

REPORT INFORMATION
  Report Type: Spontaneous
  Country: US (occurrence: US)
  Receive Date: 20181009
  Receipt Date: 20190111
  Transmission Date: 20190417
  Serious: No
  Sender: FDA-Public Use
  Company Number: US-TEVA-2018-US-962711

PATIENT
  Sex: Male

DRUGS (8)
  1. COGENTIN [Concomitant]
     Active Substance: BENZTROPINE MESYLATE
  2. AUSTEDO [Suspect]
     Active Substance: DEUTETRABENAZINE
     Indication: TARDIVE DYSKINESIA
     Dosage: 36 MILLIGRAM DAILY;
     Route: 065
  3. CYMBALTA [Concomitant]
     Active Substance: DULOXETINE HYDROCHLORIDE
  4. PAXIL [Concomitant]
     Active Substance: PAROXETINE HYDROCHLORIDE
  5. REMERON [Concomitant]
     Active Substance: MIRTAZAPINE
  6. CLOZARIL [Concomitant]
     Active Substance: CLOZAPINE
  7. HALDOL [Concomitant]
     Active Substance: HALOPERIDOL
  8. INGREZZA [Concomitant]
     Active Substance: VALBENAZINE

REACTIONS (2)
  - Bradykinesia [Unknown]
  - Akathisia [Unknown]

NARRATIVE: CASE EVENT DATE: 201809
